FAERS Safety Report 12765669 (Version 1)
Quarter: 2016Q3

REPORT INFORMATION
  Report Type: Spontaneous
  Country: US (occurrence: US)
  Receive Date: 20160921
  Receipt Date: 20160921
  Transmission Date: 20161109
  Serious: No
  Sender: FDA-Public Use
  Company Number: US-JNJFOC-20160520201

PATIENT
  Age: 79 Year
  Sex: Male
  Weight: 74.39 kg

DRUGS (6)
  1. XARELTO [Suspect]
     Active Substance: RIVAROXABAN
     Indication: ATRIAL FIBRILLATION
     Route: 048
     Dates: start: 20130809, end: 20130911
  2. XARELTO [Suspect]
     Active Substance: RIVAROXABAN
     Indication: ATRIAL FLUTTER
     Route: 048
     Dates: start: 20130809, end: 20130911
  3. XARELTO [Suspect]
     Active Substance: RIVAROXABAN
     Indication: EMBOLISM
     Route: 048
     Dates: start: 20130809, end: 20130911
  4. XARELTO [Suspect]
     Active Substance: RIVAROXABAN
     Indication: CEREBROVASCULAR ACCIDENT PROPHYLAXIS
     Route: 048
     Dates: start: 20130809, end: 20130911
  5. XARELTO [Suspect]
     Active Substance: RIVAROXABAN
     Indication: THROMBOSIS PROPHYLAXIS
     Route: 048
     Dates: start: 20130809, end: 20130911
  6. XARELTO [Suspect]
     Active Substance: RIVAROXABAN
     Indication: THROMBOSIS PROPHYLAXIS
     Route: 048
     Dates: start: 20130809, end: 20130911

REACTIONS (2)
  - Gingival bleeding [Unknown]
  - Tooth loss [Unknown]

NARRATIVE: CASE EVENT DATE: 20130911
